FAERS Safety Report 6882661-0 (Version None)
Quarter: 2010Q3

REPORT INFORMATION
  Report Type: 
  Country: None (occurrence: None)
  Receive Date: 20100729
  Receipt Date: 20100715
  Transmission Date: 20110219
  Serious: Yes (Life-Threatening, Hospitalization)
  Sender: FDA-Public Use
  Company Number: FR-WYE-H16321410

PATIENT
  Age: 94 Year
  Sex: Male

DRUGS (11)
  1. CORDARONE [Suspect]
     Indication: ATRIAL FIBRILLATION
     Dosage: 200 MG TABLETS (0.5 DF DAILY)
     Route: 048
     Dates: end: 20100104
  2. NITROGLYCERIN [Concomitant]
     Indication: ANGINA PECTORIS
     Route: 062
  3. DOLIPRANE [Concomitant]
     Indication: PAIN
     Route: 048
     Dates: start: 20091206
  4. SERETIDE [Concomitant]
     Indication: CHRONIC OBSTRUCTIVE PULMONARY DISEASE
     Dosage: 500/50 MCG / DOSE, 1 DF BID
     Route: 055
  5. CITALOPRAM HYDROBROMIDE [Interacting]
     Indication: DEPRESSION
     Route: 048
  6. FORLAX [Concomitant]
     Indication: CONSTIPATION
     Dosage: 3 DF (FREQUENCY NOT SPECIFIED)
     Route: 048
     Dates: start: 20090103
  7. LYRICA [Concomitant]
     Indication: NEURALGIA
     Route: 048
  8. XALATAN [Concomitant]
     Indication: GLAUCOMA
     Route: 047
  9. PERINDOPRIL ERBUMINE [Concomitant]
     Indication: HYPERTENSION
     Route: 048
  10. PREVISCAN [Suspect]
     Indication: PROPHYLAXIS
     Route: 048
     Dates: end: 20100104
  11. PREVISCAN [Suspect]
     Indication: TRANSIENT ISCHAEMIC ATTACK

REACTIONS (2)
  - DRUG INTERACTION [None]
  - MUSCLE HAEMORRHAGE [None]
